FAERS Safety Report 15982673 (Version 1)
Quarter: 2019Q1

REPORT INFORMATION
  Report Type: Spontaneous
  Country: ES (occurrence: ES)
  Receive Date: 20190219
  Receipt Date: 20190219
  Transmission Date: 20190418
  Serious: Yes (Other)
  Sender: FDA-Public Use
  Company Number: ES-PFIZER INC-2019063956

PATIENT
  Age: 58 Year
  Sex: Male

DRUGS (1)
  1. METHOTREXATE. [Suspect]
     Active Substance: METHOTREXATE
     Indication: PSORIASIS
     Dosage: INTERMITTENT TREATMENT

REACTIONS (3)
  - Contraindicated product administered [Recovered/Resolved]
  - Bone marrow toxicity [Recovered/Resolved]
  - Chronic myeloid leukaemia [Recovered/Resolved]
